FAERS Safety Report 9458688 (Version 2)
Quarter: 2013Q4

REPORT INFORMATION
  Report Type: Spontaneous
  Country: IT (occurrence: IT)
  Receive Date: 20130814
  Receipt Date: 20131023
  Transmission Date: 20140711
  Serious: Yes (Hospitalization)
  Sender: FDA-Public Use
  Company Number: IT-ACTAVIS-2013-14355

PATIENT
  Age: 47 Year
  Sex: Female

DRUGS (1)
  1. ALPRAZOLAM [Suspect]
     Indication: INTENTIONAL SELF-INJURY
     Dosage: 10 ML, SINGLE
     Route: 048
     Dates: start: 20130629, end: 20130629

REACTIONS (4)
  - Bradyphrenia [Recovering/Resolving]
  - Sopor [Recovering/Resolving]
  - Intentional drug misuse [Recovering/Resolving]
  - Drug abuse [Recovering/Resolving]
